FAERS Safety Report 4708792-9 (Version None)
Quarter: 2005Q3

REPORT INFORMATION
  Report Type: 
  Country: None (occurrence: None)
  Receive Date: 20050705
  Receipt Date: 20050622
  Transmission Date: 20060218
  Serious: Yes (Other)
  Sender: FDA-Public Use
  Company Number: 2005092180

PATIENT
  Sex: Female

DRUGS (8)
  1. DILANTIN KAPSEAL [Suspect]
     Indication: CONVULSION
     Dosage: 400 MG (100 MG, 4 IN 1 D), ORAL
     Route: 048
  2. REMINYL [Concomitant]
  3. SEROQUEL (QUETIAMPINE FUMARATE) [Concomitant]
  4. REMERON [Concomitant]
  5. ALTACE [Concomitant]
  6. TEMAZEPAM [Concomitant]
  7. LIPITOR [Concomitant]
  8. MULTIVITAMIN [Concomitant]

REACTIONS (4)
  - ANTICONVULSANT DRUG LEVEL DECREASED [None]
  - CONVULSION [None]
  - DRUG INEFFECTIVE [None]
  - DRUG INTERACTION [None]
